FAERS Safety Report 13563748 (Version 7)
Quarter: 2018Q3

REPORT INFORMATION
  Report Type: Spontaneous
  Country: BR (occurrence: BR)
  Receive Date: 20170519
  Receipt Date: 20180828
  Transmission Date: 20181010
  Serious: Yes (Hospitalization, Other)
  Sender: FDA-Public Use
  Company Number: BR-PFIZER INC-2017214617

PATIENT
  Age: 72 Year
  Sex: Female

DRUGS (8)
  1. NORVASC [Concomitant]
     Active Substance: AMLODIPINE BESYLATE
     Indication: BLOOD PRESSURE ABNORMAL
     Dosage: 5 MG, AT NIGHT
     Dates: start: 2007, end: 2018
  2. LIPITOR [Suspect]
     Active Substance: ATORVASTATIN CALCIUM
     Dosage: 40 MG, 1X/DAY
     Dates: start: 2016
  3. LIPITOR [Suspect]
     Active Substance: ATORVASTATIN CALCIUM
     Indication: GALLBLADDER OPERATION
     Dosage: 80 MG, DAILY
     Dates: start: 2012, end: 2016
  4. OLMETEC HCT [Concomitant]
     Active Substance: HYDROCHLOROTHIAZIDE\OLMESARTAN MEDOXOMIL
     Dosage: [OLMESARTAN 40 MG/ HYDROCHLOROTHIAZIDE 25 MG], 1X/DAY (AFTER BREAKFAST)
     Dates: start: 2007
  5. EXFORGE HCT [Concomitant]
     Active Substance: AMLODIPINE BESYLATE\HYDROCHLOROTHIAZIDE\VALSARTAN
  6. ATENOLOL. [Concomitant]
     Active Substance: ATENOLOL
     Indication: BLOOD PRESSURE MEASUREMENT
     Dosage: 2 TAB OF 25 MG IN THE MORNING AND 1 TAB OF 25 MG AT NIGHT
     Dates: start: 2007
  7. ALLOPURINOL. [Concomitant]
     Active Substance: ALLOPURINOL
     Dosage: UNK
     Dates: start: 2007
  8. CIPIDE /00697202/ [Concomitant]
     Indication: GOUT
     Dosage: UNK

REACTIONS (12)
  - Gastrointestinal disorder [Recovered/Resolved]
  - Flatulence [Recovered/Resolved]
  - Blood sodium decreased [Recovered/Resolved]
  - Muscular weakness [Recovered/Resolved]
  - Product size issue [Recovered/Resolved]
  - Dizziness [Recovered/Resolved]
  - Abdominal pain upper [Recovered/Resolved]
  - Breast mass [Unknown]
  - Weight decreased [Unknown]
  - Asthenia [Recovered/Resolved]
  - Pharyngeal injury [Recovered/Resolved]
  - Dysphagia [Recovered/Resolved]

NARRATIVE: CASE EVENT DATE: 2012
